FAERS Safety Report 6043802-0 (Version None)
Quarter: 2009Q1

REPORT INFORMATION
  Report Type: 
  Country: None (occurrence: None)
  Receive Date: 20090120
  Receipt Date: 20090116
  Transmission Date: 20090719
  Serious: Yes (Life-Threatening, Hospitalization)
  Sender: FDA-Public Use
  Company Number: PHHY2008FR28688

PATIENT
  Sex: Male

DRUGS (5)
  1. LEPONEX [Suspect]
     Indication: SCHIZOPHRENIA
     Dosage: 350 MG/DAY
     Dates: start: 20080403
  2. LEPONEX [Suspect]
     Dosage: 100MG, 1 TABLET MORNING, 2 TABLETS EVENING
     Dates: start: 20080403
  3. LEPONEX [Suspect]
     Dosage: 25 MG, 2 TABLETS MORNING
     Dates: start: 20080403
  4. TERCIAN [Suspect]
     Indication: SCHIZOPHRENIA
     Dosage: 80MG/DAY (30 DROPS MORNING, 50 DROPS EVENING)
     Route: 048
     Dates: start: 20060809, end: 20081208
  5. SERESTA [Concomitant]
     Dosage: 50 MG/DAY

REACTIONS (24)
  - BLOOD BICARBONATE INCREASED [None]
  - BLOOD CREATININE DECREASED [None]
  - BLOOD CULTURE POSITIVE [None]
  - BLOOD PH DECREASED [None]
  - BLOOD URIC ACID DECREASED [None]
  - BODY TEMPERATURE INCREASED [None]
  - C-REACTIVE PROTEIN INCREASED [None]
  - COLITIS [None]
  - CONSTIPATION [None]
  - DEHYDRATION [None]
  - DIARRHOEA [None]
  - ENEMA ADMINISTRATION [None]
  - FAECALOMA [None]
  - GASTROENTERITIS BACTERIAL [None]
  - GASTROINTESTINAL MOTILITY DISORDER [None]
  - HEART RATE INCREASED [None]
  - HYPONATRAEMIA [None]
  - HYPOTENSION [None]
  - HYPOVOLAEMIC SHOCK [None]
  - LARGE INTESTINAL ULCER [None]
  - METABOLIC ACIDOSIS [None]
  - RENAL FAILURE ACUTE [None]
  - VOMITING [None]
  - WHITE BLOOD CELL COUNT INCREASED [None]
